FAERS Safety Report 5818194-X (Version None)
Quarter: 2008Q3

REPORT INFORMATION
  Report Type: 
  Country: None (occurrence: None)
  Receive Date: 20080722
  Receipt Date: 20080710
  Transmission Date: 20090109
  Serious: Yes (Other)
  Sender: FDA-Public Use
  Company Number: GB-PFIZER INC-2008058106

PATIENT
  Age: 49 Year
  Sex: Female

DRUGS (5)
  1. CHANTIX [Suspect]
     Indication: SMOKING CESSATION THERAPY
     Dates: start: 20080331, end: 20080620
  2. AMITRIPTYLINE HCL [Concomitant]
  3. DICLOFENAC SODIUM [Concomitant]
  4. LEVOTHYROXINE SODIUM [Concomitant]
  5. TRAMADOL HCL [Concomitant]

REACTIONS (2)
  - DEPRESSION [None]
  - MOOD ALTERED [None]
